FAERS Safety Report 15546910 (Version 5)
Quarter: 2021Q2

REPORT INFORMATION
  Report Type: Report from Study
  Country: US (occurrence: US)
  Receive Date: 20181024
  Receipt Date: 20210508
  Transmission Date: 20210716
  Serious: Yes (Hospitalization, Other)
  Sender: FDA-Public Use
  Company Number: US-TAKEDA-2018TUS025681

PATIENT
  Sex: Female

DRUGS (4)
  1. PONATINIB [Suspect]
     Active Substance: PONATINIB
     Dosage: 30 MILLIGRAM, QD
     Route: 048
     Dates: start: 20180710
  2. PONATINIB [Suspect]
     Active Substance: PONATINIB
     Indication: CHRONIC MYELOID LEUKAEMIA
     Dosage: 45 MILLIGRAM, QD
     Route: 048
     Dates: start: 20180709
  3. PONATINIB [Suspect]
     Active Substance: PONATINIB
     Dosage: 45 MILLIGRAM, QD
     Route: 048
     Dates: end: 20200608
  4. PONATINIB [Suspect]
     Active Substance: PONATINIB
     Dosage: 15 MILLIGRAM, BID
     Route: 048

REACTIONS (23)
  - Illness [Unknown]
  - Haemoglobin decreased [Unknown]
  - Candida infection [Unknown]
  - Bronchitis [Not Recovered/Not Resolved]
  - Febrile neutropenia [Unknown]
  - Oesophagitis [Unknown]
  - Memory impairment [Unknown]
  - Fungal infection [Unknown]
  - Peripheral swelling [Unknown]
  - Night sweats [Unknown]
  - Drug ineffective [Unknown]
  - Platelet disorder [Unknown]
  - Tearfulness [Unknown]
  - Anxiety [Unknown]
  - Cognitive disorder [Unknown]
  - Oropharyngeal pain [Unknown]
  - Nasopharyngitis [Unknown]
  - Weight decreased [Unknown]
  - Product dose omission issue [Unknown]
  - Rales [Unknown]
  - White blood cell count decreased [Unknown]
  - Pulmonary hypertension [Unknown]
  - Wheezing [Unknown]
